FAERS Safety Report 21328991 (Version 7)
Quarter: 2024Q2

REPORT INFORMATION
  Report Type: Spontaneous
  Country: US (occurrence: US)
  Receive Date: 20220913
  Receipt Date: 20240402
  Transmission Date: 20240716
  Serious: Yes (Other)
  Sender: FDA-Public Use
  Company Number: US-PFIZER INC-2021058741

PATIENT
  Age: 89 Year
  Sex: Female
  Weight: 69.85 kg

DRUGS (2)
  1. IBRANCE [Suspect]
     Active Substance: PALBOCICLIB
     Indication: Breast cancer female
     Dosage: 125 MG, 1X/DAY
  2. IBRANCE [Suspect]
     Active Substance: PALBOCICLIB
     Dosage: 100 MG, CYCLIC (21 DAYS WITH A 7-DAY BREAK 1 TABLET DAILY)
     Route: 048

REACTIONS (5)
  - Cerebrovascular accident [Unknown]
  - COVID-19 [Unknown]
  - Dysgraphia [Unknown]
  - Amnesia [Unknown]
  - Inappropriate schedule of product administration [Unknown]

NARRATIVE: CASE EVENT DATE: 20220101
